FAERS Safety Report 15920800 (Version 1)
Quarter: 2019Q1

REPORT INFORMATION
  Report Type: Spontaneous
  Country: US (occurrence: US)
  Receive Date: 20190205
  Receipt Date: 20190205
  Transmission Date: 20190417
  Serious: No
  Sender: FDA-Public Use
  Company Number: PHEH2019US005167

PATIENT
  Sex: Female
  Weight: 117 kg

DRUGS (2)
  1. LETROZOLE. [Suspect]
     Active Substance: LETROZOLE
     Indication: PRODUCT USED FOR UNKNOWN INDICATION
     Dosage: UNK
     Route: 065
  2. IBRANCE [Suspect]
     Active Substance: PALBOCICLIB
     Indication: BREAST CANCER
     Dosage: 125 MG, (1-21 DAYS, Q 28 DAYS)
     Route: 048
     Dates: start: 20170215

REACTIONS (3)
  - Lethargy [Unknown]
  - Feeling abnormal [Unknown]
  - Asthenia [Unknown]
